FAERS Safety Report 20354914 (Version 1)
Quarter: 2022Q1

REPORT INFORMATION
  Report Type: Spontaneous
  Country: US (occurrence: US)
  Receive Date: 20220120
  Receipt Date: 20220120
  Transmission Date: 20220423
  Serious: Yes (Other)
  Sender: FDA-Public Use
  Company Number: ENDG21-06352

PATIENT
  Sex: Male

DRUGS (2)
  1. PERCOCET [Suspect]
     Active Substance: ACETAMINOPHEN\OXYCODONE HYDROCHLORIDE
     Indication: Product used for unknown indication
     Dosage: UNK UNKNOWN, UNKNOWN
     Route: 065
  2. CHANTIX [Concomitant]
     Active Substance: VARENICLINE TARTRATE
     Indication: Product used for unknown indication
     Dosage: UNK UNKNOWN, UNKNOWN
     Route: 065

REACTIONS (1)
  - Drug dependence [Not Recovered/Not Resolved]
